FAERS Safety Report 12468921 (Version 1)
Quarter: 2016Q2

REPORT INFORMATION
  Report Type: Spontaneous
  Country: CA (occurrence: CA)
  Receive Date: 20160615
  Receipt Date: 20160615
  Transmission Date: 20160815
  Serious: Yes (Other)
  Sender: FDA-Public Use
  Company Number: CA-PFIZER INC-2016283087

PATIENT
  Age: 57 Year
  Sex: Female

DRUGS (4)
  1. SULFASALAZINE. [Suspect]
     Active Substance: SULFASALAZINE
     Indication: RHEUMATOID ARTHRITIS
     Dosage: 1000 MG, 2X/DAY
     Route: 048
     Dates: start: 20150805
  2. CORTISONE [Suspect]
     Active Substance: CORTISONE\HYDROCORTISONE
  3. METHOTREXATE SODIUM. [Suspect]
     Active Substance: METHOTREXATE SODIUM
     Indication: RHEUMATOID ARTHRITIS
     Dosage: 20 MG, WEEKLY
     Route: 058
     Dates: start: 201506
  4. PLAQUENIL [Suspect]
     Active Substance: HYDROXYCHLOROQUINE SULFATE
     Indication: RHEUMATOID ARTHRITIS
     Dosage: 200 MG TWICE A MONTH IN ONE DAY
     Dates: start: 20150903, end: 20151104

REACTIONS (9)
  - Pancreatitis [Unknown]
  - Fatigue [Unknown]
  - Decreased appetite [Unknown]
  - Diabetes mellitus [Unknown]
  - Nausea [Unknown]
  - Condition aggravated [Unknown]
  - Impaired work ability [Not Recovered/Not Resolved]
  - Vomiting [Unknown]
  - Drug effect incomplete [Unknown]
